FAERS Safety Report 6810045-X (Version None)
Quarter: 2010Q2

REPORT INFORMATION
  Report Type: 
  Country: None (occurrence: None)
  Receive Date: 20100630
  Receipt Date: 20100623
  Transmission Date: 20101027
  Serious: Yes (Hospitalization)
  Sender: FDA-Public Use
  Company Number: JP-ROCHE-693702

PATIENT
  Sex: Female
  Weight: 47 kg

DRUGS (57)
  1. ACTEMRA [Suspect]
     Indication: CASTLEMAN'S DISEASE
     Route: 041
     Dates: start: 20050901, end: 20050901
  2. ACTEMRA [Suspect]
     Route: 041
     Dates: start: 20050914, end: 20050914
  3. ACTEMRA [Suspect]
     Route: 041
     Dates: start: 20050930, end: 20050930
  4. ACTEMRA [Suspect]
     Route: 041
     Dates: start: 20051013, end: 20051013
  5. ACTEMRA [Suspect]
     Route: 041
     Dates: start: 20051027, end: 20051122
  6. ACTEMRA [Suspect]
     Route: 041
     Dates: start: 20051213, end: 20051213
  7. ACTEMRA [Suspect]
     Route: 041
     Dates: start: 20051227, end: 20060112
  8. ACTEMRA [Suspect]
     Route: 041
     Dates: start: 20060126, end: 20060209
  9. ACTEMRA [Suspect]
     Route: 041
     Dates: start: 20060223, end: 20060223
  10. ACTEMRA [Suspect]
     Route: 041
     Dates: start: 20060309, end: 20060309
  11. ACTEMRA [Suspect]
     Route: 041
     Dates: start: 20060322, end: 20060322
  12. ACTEMRA [Suspect]
     Route: 041
     Dates: start: 20060411, end: 20060411
  13. ACTEMRA [Suspect]
     Route: 041
     Dates: start: 20060427, end: 20060817
  14. ACTEMRA [Suspect]
     Route: 041
     Dates: start: 20060905, end: 20060905
  15. ACTEMRA [Suspect]
     Route: 041
     Dates: start: 20060921, end: 20061130
  16. ACTEMRA [Suspect]
     Route: 041
     Dates: start: 20061207, end: 20061207
  17. ACTEMRA [Suspect]
     Route: 041
     Dates: start: 20061221, end: 20061221
  18. ACTEMRA [Suspect]
     Route: 041
     Dates: start: 20070111, end: 20070111
  19. ACTEMRA [Suspect]
     Route: 041
     Dates: start: 20070125, end: 20070208
  20. ACTEMRA [Suspect]
     Route: 041
     Dates: start: 20070222, end: 20070222
  21. ACTEMRA [Suspect]
     Route: 041
     Dates: start: 20070308, end: 20070420
  22. ACTEMRA [Suspect]
     Route: 041
     Dates: start: 20070510, end: 20070510
  23. ACTEMRA [Suspect]
     Route: 041
     Dates: start: 20070524, end: 20070719
  24. ACTEMRA [Suspect]
     Route: 041
     Dates: start: 20070809, end: 20070809
  25. ACTEMRA [Suspect]
     Route: 041
     Dates: start: 20070816, end: 20070816
  26. ACTEMRA [Suspect]
     Route: 041
     Dates: start: 20070830, end: 20071108
  27. ACTEMRA [Suspect]
     Route: 041
     Dates: start: 20071130, end: 20071130
  28. ACTEMRA [Suspect]
     Route: 041
     Dates: start: 20071211, end: 20080110
  29. ACTEMRA [Suspect]
     Route: 041
     Dates: start: 20080131, end: 20080131
  30. ACTEMRA [Suspect]
     Route: 041
     Dates: start: 20080214, end: 20080327
  31. ACTEMRA [Suspect]
     Route: 041
     Dates: start: 20080410, end: 20080424
  32. ACTEMRA [Suspect]
     Route: 041
     Dates: start: 20080515, end: 20080515
  33. ACTEMRA [Suspect]
     Route: 041
     Dates: start: 20080529
  34. ACTEMRA [Suspect]
     Route: 041
     Dates: end: 20100517
  35. PREDNISOLONE [Concomitant]
     Route: 048
     Dates: end: 20060126
  36. PREDNISOLONE [Concomitant]
     Route: 048
     Dates: start: 20060127, end: 20060920
  37. PREDNISOLONE [Concomitant]
     Route: 048
     Dates: start: 20060921, end: 20070523
  38. PREDNISOLONE [Concomitant]
     Route: 048
     Dates: start: 20070524, end: 20071127
  39. ONEALFA [Concomitant]
     Dosage: FORM: PERORAL AGENT
     Route: 048
     Dates: end: 20060126
  40. ONEALFA [Concomitant]
     Route: 048
     Dates: start: 20060127, end: 20060920
  41. ONEALFA [Concomitant]
     Route: 048
     Dates: start: 20060921, end: 20070523
  42. ONEALFA [Concomitant]
     Route: 048
     Dates: start: 20070524, end: 20071127
  43. TAGAMET [Concomitant]
     Route: 048
     Dates: end: 20060126
  44. TAGAMET [Concomitant]
     Route: 048
     Dates: start: 20060127, end: 20060920
  45. TAGAMET [Concomitant]
     Route: 048
     Dates: start: 20060921, end: 20070523
  46. TAGAMET [Concomitant]
     Route: 048
     Dates: start: 20070524, end: 20071127
  47. APLACE [Concomitant]
     Dosage: FORM: PERORAL AGENT.
     Route: 048
     Dates: start: 20090903, end: 20090912
  48. APLACE [Concomitant]
     Dosage: FORM: PERORAL AGENT.
     Route: 048
     Dates: start: 20091008, end: 20091020
  49. APLACE [Concomitant]
     Route: 048
     Dates: start: 20091105, end: 20091228
  50. LOBU [Concomitant]
     Dosage: FORM: PERORAL AGENT.
     Route: 048
     Dates: start: 20090903, end: 20090912
  51. LOBU [Concomitant]
     Dosage: FORM: PERORAL AGENT.
     Route: 048
     Dates: start: 20091008, end: 20091020
  52. LOBU [Concomitant]
     Dosage: FORM: PERORAL AGENT.
     Route: 048
     Dates: start: 20091105, end: 20091228
  53. RIZE [Concomitant]
     Dosage: FORM: PERORAL AGENT
     Dates: start: 20090924, end: 20090928
  54. MYONAL [Concomitant]
     Dosage: FORM: PERORAL AGENT.
     Dates: start: 20091008, end: 20091020
  55. VOLTAREN [Concomitant]
     Route: 054
     Dates: start: 20091020, end: 20091119
  56. VOLTAREN [Concomitant]
     Route: 054
     Dates: start: 20091221, end: 20091231
  57. NERIPROCT [Concomitant]
     Route: 054
     Dates: start: 20091020, end: 20091203

REACTIONS (5)
  - ANAL CANCER [None]
  - DIARRHOEA [None]
  - NAUSEA [None]
  - OROPHARYNGEAL PAIN [None]
  - UPPER RESPIRATORY TRACT INFLAMMATION [None]
